FAERS Safety Report 7182237-4 (Version None)
Quarter: 2010Q4

REPORT INFORMATION
  Report Type: 
  Country: None (occurrence: None)
  Receive Date: 20101221
  Receipt Date: 20100510
  Transmission Date: 20110411
  Serious: No
  Sender: FDA-Public Use
  Company Number: US-AMGEN-KDL411228

PATIENT

DRUGS (8)
  1. ENBREL [Suspect]
     Indication: ANKYLOSING SPONDYLITIS
     Dosage: 50 MG, QWK
     Route: 058
  2. METHOTREXATE [Concomitant]
     Dosage: 2.5 MG, UNK
  3. PREDNISONE [Concomitant]
     Dosage: 5 MG, UNK
  4. FOLIC ACID [Concomitant]
     Dosage: 1 MG, UNK
  5. PYRIDOXINE HYDROCHLORIDE [Concomitant]
     Dosage: 100 MG, UNK
  6. DILTIAZEM HYDROCHLORIDE [Concomitant]
     Dosage: 120 MG, UNK
  7. CYANOCOBALAMIN [Concomitant]
     Dosage: UNK UNK, UNK
  8. LEVOTHYROXINE SODIUM [Concomitant]
     Dosage: 88 A?G, UNK

REACTIONS (1)
  - ALOPECIA [None]
